FAERS Safety Report 5905769-2 (Version None)
Quarter: 2008Q4

REPORT INFORMATION
  Report Type: 
  Country: None (occurrence: None)
  Receive Date: 20081002
  Receipt Date: 20080923
  Transmission Date: 20090506
  Serious: Yes (Death, Life-Threatening, Hospitalization, Disabling, Congenital Anomaly, Other)
  Sender: FDA-Public Use
  Company Number: A0737479A

PATIENT
  Sex: Female
  Weight: 2.6 kg

DRUGS (4)
  1. AVODART [Suspect]
     Indication: ACCIDENTAL EXPOSURE
     Dates: start: 20030101, end: 20060101
  2. TERBUTALINE SULFATE [Concomitant]
  3. VITAMIN AND MINERAL PRENATAL SUPPLEMENT W/ FOLIC ACID CAP [Concomitant]
     Indication: PREGNANCY
     Dates: start: 20060601, end: 20070601
  4. FOLIC ACID [Concomitant]
     Dosage: 4MG PER DAY
     Dates: start: 19940301

REACTIONS (5)
  - CONGENITAL KNEE DEFORMITY [None]
  - DRUG EXPOSURE DURING PREGNANCY [None]
  - PREMATURE BABY [None]
  - TALIPES [None]
  - TRACHEO-OESOPHAGEAL FISTULA [None]
